FAERS Safety Report 7148604-X (Version None)
Quarter: 2010Q4

REPORT INFORMATION
  Report Type: 
  Country: None (occurrence: None)
  Receive Date: 20101209
  Receipt Date: 20100304
  Transmission Date: 20110411
  Serious: No
  Sender: FDA-Public Use
  Company Number: A0848342A

PATIENT
  Age: 52 Year
  Sex: Female

DRUGS (5)
  1. AVANDAMET [Suspect]
     Route: 048
     Dates: start: 20080101, end: 20080101
  2. AVANDIA [Suspect]
     Dosage: 4MG TWICE PER DAY
     Route: 048
     Dates: start: 20080101, end: 20090101
  3. METFORMIN [Concomitant]
  4. LISINOPRIL [Concomitant]
  5. PROVASTIN [Concomitant]

REACTIONS (2)
  - DRUG INEFFECTIVE [None]
  - HYPERTENSION [None]
